FAERS Safety Report 14933843 (Version 4)
Quarter: 2018Q2

REPORT INFORMATION
  Report Type: Spontaneous
  Country: JP (occurrence: JP)
  Receive Date: 20180524
  Receipt Date: 20180622
  Transmission Date: 20180711
  Serious: Yes (Death, Other)
  Sender: FDA-Public Use
  Company Number: JP-ASTRAZENECA-2018SE67288

PATIENT
  Age: 24802 Day
  Sex: Female
  Weight: 52 kg

DRUGS (25)
  1. ALDACTONE A [Concomitant]
     Active Substance: SPIRONOLACTONE
     Indication: OEDEMA
     Route: 048
     Dates: start: 20151124, end: 20151207
  2. LOXONIN [Concomitant]
     Active Substance: LOXOPROFEN SODIUM
     Indication: BACK PAIN
     Dosage: 6 MG, AS REQUIRED, 14 DOSES
     Route: 048
     Dates: start: 20151215
  3. PURSENNID [Concomitant]
     Active Substance: SENNOSIDES A AND B
     Indication: CONSTIPATION
     Route: 048
     Dates: start: 20151215, end: 20151228
  4. AMLODIPINE [Concomitant]
     Active Substance: AMLODIPINE BESYLATE
     Indication: HYPERTENSION
     Route: 048
     Dates: start: 20151225, end: 20151227
  5. VALSARTAN. [Concomitant]
     Active Substance: VALSARTAN
     Indication: HYPERTENSION
     Route: 048
     Dates: start: 20151225, end: 20151227
  6. VALSARTAN. [Concomitant]
     Active Substance: VALSARTAN
     Indication: HYPERTENSION
     Route: 048
     Dates: end: 20160107
  7. NEXIUM [Suspect]
     Active Substance: ESOMEPRAZOLE MAGNESIUM
     Indication: GASTROOESOPHAGEAL REFLUX DISEASE
     Route: 048
     Dates: start: 20151124, end: 20160107
  8. METGLUCO [Concomitant]
     Active Substance: METFORMIN HYDROCHLORIDE
     Indication: DIABETES MELLITUS
     Route: 048
     Dates: start: 20151110, end: 20160107
  9. HERBAL NOS [Concomitant]
     Active Substance: HERBALS
     Indication: EPIGASTRIC DISCOMFORT
     Route: 048
     Dates: start: 20160104, end: 20160108
  10. VITAMIN B COMPLEX [Concomitant]
     Active Substance: CYANOCOBALAMIN\DEXPANTHENOL\NIACINAMIDE\PYRIDOXINE HYDROCHLORIDE\RIBOFLAVIN 5^-PHOSPHATE SODIUM\THIAMINE HYDROCHLORIDE\VITAMIN B COMPLEX
     Indication: HYPOVITAMINOSIS
     Route: 042
     Dates: start: 20160104, end: 20160108
  11. BUFFERIN 330 MG [Concomitant]
     Dosage: DOSE UNKNOWN
     Route: 048
     Dates: start: 20151215
  12. NORVASC [Concomitant]
     Active Substance: AMLODIPINE BESYLATE
     Indication: HYPERTENSION
     Route: 048
     Dates: start: 20151124, end: 20160104
  13. CELECOX [Concomitant]
     Active Substance: CELECOXIB
     Indication: PAIN
     Route: 048
     Dates: start: 20151110, end: 20160107
  14. AMLODIPINE [Concomitant]
     Active Substance: AMLODIPINE BESYLATE
     Indication: HYPERTENSION
     Route: 048
     Dates: end: 20160107
  15. LASIX [Concomitant]
     Active Substance: FUROSEMIDE
     Indication: POLYURIA
     Route: 048
     Dates: start: 20151124, end: 20151207
  16. SENNOSIDE [Concomitant]
     Active Substance: SENNOSIDES
     Indication: CONSTIPATION
     Route: 048
     Dates: start: 20151228, end: 20160108
  17. HERBAL NOS [Concomitant]
     Active Substance: HERBALS
     Indication: GENERAL PHYSICAL HEALTH DETERIORATION
     Route: 048
     Dates: start: 20151110, end: 20160107
  18. ALOXI [Concomitant]
     Active Substance: PALONOSETRON HYDROCHLORIDE
     Indication: HEPATIC ANGIOSARCOMA
     Route: 042
     Dates: start: 20151117, end: 20151208
  19. PACLITAXEL. [Concomitant]
     Active Substance: PACLITAXEL
     Indication: HEPATIC ANGIOSARCOMA
     Route: 042
     Dates: start: 20151124, end: 20151208
  20. CISPLATIN. [Concomitant]
     Active Substance: CISPLATIN
     Indication: HEPATIC ANGIOSARCOMA
     Route: 042
     Dates: start: 20151117, end: 20151208
  21. ASCORBIC ACID. [Concomitant]
     Active Substance: ASCORBIC ACID
     Indication: HYPOVITAMINOSIS
     Route: 042
     Dates: start: 20160104, end: 20160108
  22. LIDOCAINE HYDROCHLORIDE. [Concomitant]
     Active Substance: LIDOCAINE HYDROCHLORIDE
     Indication: LOCAL ANAESTHESIA
     Dosage: DOSE UNKNOWN
     Route: 065
     Dates: start: 20151222
  23. DIOVAN [Concomitant]
     Active Substance: VALSARTAN
     Indication: HYPERTENSION
     Route: 048
     Dates: start: 20151124, end: 20160104
  24. DECADRON [Concomitant]
     Active Substance: DEXAMETHASONE
     Indication: HEPATIC ANGIOSARCOMA
     Route: 042
     Dates: start: 20151117, end: 20151208
  25. JUZENTAIHOTO [Concomitant]
     Active Substance: HERBALS
     Indication: GENERAL PHYSICAL HEALTH DETERIORATION
     Route: 048
     Dates: start: 20151110, end: 20160107

REACTIONS (4)
  - Hepatic function abnormal [Not Recovered/Not Resolved]
  - Toxic epidermal necrolysis [Unknown]
  - Multiple organ dysfunction syndrome [Fatal]
  - Hepatic angiosarcoma [Unknown]

NARRATIVE: CASE EVENT DATE: 20160104
